FAERS Safety Report 7807127-2 (Version None)
Quarter: 2011Q4

REPORT INFORMATION
  Report Type: 
  Country: None (occurrence: None)
  Receive Date: 20111011
  Receipt Date: 20110928
  Transmission Date: 20120403
  Serious: Yes (Hospitalization, Other)
  Sender: FDA-Public Use
  Company Number: US-ELI_LILLY_AND_COMPANY-US201002001926

PATIENT
  Sex: Female

DRUGS (11)
  1. CENTRUM SILVER [Concomitant]
  2. FORTEO [Suspect]
     Indication: OSTEOPOROSIS
     Dosage: 20 UG, DAILY (1/D)
     Dates: start: 20091101
  3. PREMARIN [Concomitant]
     Dosage: UNK, UNKNOWN
     Route: 065
  4. FENOFIBRATE [Concomitant]
     Dosage: UNK, UNKNOWN
     Route: 065
  5. DIFLUNISAL [Concomitant]
     Dosage: UNK, UNKNOWN
     Route: 065
  6. TRAMADOL HCL [Concomitant]
     Dosage: UNK, UNKNOWN
     Route: 065
  7. OSTEO [Concomitant]
  8. CALCIUM CARBONATE [Concomitant]
  9. SYNTHROID [Concomitant]
     Dosage: UNK, UNKNOWN
     Route: 065
  10. FORTEO [Suspect]
     Dosage: 20 UG, QD
  11. FLEXERIL [Concomitant]
     Dosage: UNK, UNKNOWN
     Route: 065

REACTIONS (6)
  - NASOPHARYNGITIS [None]
  - SNEEZING [None]
  - WRIST FRACTURE [None]
  - FALL [None]
  - PNEUMOTHORAX [None]
  - COUGH [None]
